FAERS Safety Report 4445797-X (Version None)
Quarter: 2004Q3

REPORT INFORMATION
  Report Type: 
  Country: None (occurrence: None)
  Receive Date: 20040902
  Receipt Date: 20040819
  Transmission Date: 20050211
  Serious: Yes (Death, Life-Threatening)
  Sender: FDA-Public Use
  Company Number: 2004EU001562

PATIENT

DRUGS (2)
  1. PROGRAF [Suspect]
     Indication: RENAL TRANSPLANT
     Dosage: 0.10 MG/KG
  2. SIROLIMUS (SIROLIMUS) [Concomitant]

REACTIONS (2)
  - CARDIAC ARREST [None]
  - PULMONARY HAEMORRHAGE [None]
